FAERS Safety Report 5210759-1 (Version None)
Quarter: 2006Q4

REPORT INFORMATION
  Report Type: 
  Country: None (occurrence: None)
  Receive Date: 20061101
  Receipt Date: 20060802
  Transmission Date: 20070319
  Serious: No
  Sender: FDA-Public Use
  Company Number: 2006PV018713

PATIENT
  Sex: Female

DRUGS (2)
  1. SYMLIN [Suspect]
     Dosage: 60 MCG; SC
     Route: 058
     Dates: start: 20060701
  2. LANTUS [Concomitant]

REACTIONS (3)
  - ASTHENIA [None]
  - LETHARGY [None]
  - MEDICATION ERROR [None]
